FAERS Safety Report 7161794 (Version 3)
Quarter: 2014Q1

REPORT INFORMATION
  Report Type: Report from Study
  Country: CA (occurrence: CA)
  Receive Date: 20091029
  Receipt Date: 20140310
  Transmission Date: 20141002
  Serious: Yes (Hospitalization)
  Sender: FDA-Public Use
  Company Number: PHHY2009CA25064

PATIENT
  Age: 12 Year
  Sex: Male

DRUGS (2)
  1. EXJADE [Suspect]
     Indication: CONGENITAL APLASTIC ANAEMIA
     Dosage: 875 MG, QD
     Route: 048
     Dates: start: 200809, end: 20090814
  2. TYLENOL [Concomitant]

REACTIONS (5)
  - Cardiac disorder [Not Recovered/Not Resolved]
  - Lower gastrointestinal haemorrhage [Unknown]
  - Faeces discoloured [Unknown]
  - Haematochezia [Recovered/Resolved]
  - Protein urine present [Unknown]
